FAERS Safety Report 9099045 (Version 1)
Quarter: 2013Q1

REPORT INFORMATION
  Report Type: Spontaneous
  Country: US (occurrence: US)
  Receive Date: 20130213
  Receipt Date: 20130213
  Transmission Date: 20140127
  Serious: No
  Sender: FDA-Public Use
  Company Number: US-PFIZER INC-2013053684

PATIENT
  Age: 69 Year
  Sex: Female
  Weight: 63.5 kg

DRUGS (1)
  1. COLESTIPOL HCL [Suspect]
     Dosage: 2 G (TWO TABLETS OF 1GM), 3X/DAY
     Route: 048
     Dates: start: 20130206, end: 20130206

REACTIONS (4)
  - Dysphagia [Unknown]
  - Suffocation feeling [Unknown]
  - Discomfort [Unknown]
  - Throat irritation [Unknown]
